FAERS Safety Report 25588891 (Version 2)
Quarter: 2025Q3

REPORT INFORMATION
  Report Type: Report from Study
  Country: JP (occurrence: JP)
  Receive Date: 20250722
  Receipt Date: 20250725
  Transmission Date: 20251021
  Serious: Yes (Death, Hospitalization, Other)
  Sender: SANOFI AVENTIS
  Company Number: JP-SA-2025SA200368

PATIENT
  Age: 72 Year
  Sex: Male
  Weight: 54.6 kg

DRUGS (18)
  1. ISATUXIMAB [Suspect]
     Active Substance: ISATUXIMAB
     Indication: Plasma cell myeloma refractory
     Dosage: 20 MG/KG, QW
     Route: 041
     Dates: start: 20240328, end: 20240418
  2. ISATUXIMAB [Suspect]
     Active Substance: ISATUXIMAB
     Dosage: 20 MG/KG, QOW
     Route: 041
     Dates: start: 20240426, end: 20240510
  3. ISATUXIMAB [Suspect]
     Active Substance: ISATUXIMAB
     Dosage: 20 MG/KG, QOW
     Route: 041
     Dates: start: 20240618, end: 20240716
  4. ISATUXIMAB [Suspect]
     Active Substance: ISATUXIMAB
     Dosage: 20 MG/KG, QOW
     Route: 041
     Dates: start: 20241004, end: 20241129
  5. DEXAMETHASONE [Concomitant]
     Active Substance: DEXAMETHASONE
     Indication: Plasma cell myeloma refractory
     Dosage: 20 MG/DAY, QW
     Route: 065
     Dates: start: 20240328, end: 20240418
  6. DEXAMETHASONE [Concomitant]
     Active Substance: DEXAMETHASONE
     Dosage: 20 MG/DAY, QOW
     Route: 065
     Dates: start: 20240426, end: 20240510
  7. DEXAMETHASONE [Concomitant]
     Active Substance: DEXAMETHASONE
     Dosage: 20 MG/DAY, QOW
     Route: 065
     Dates: start: 20240618, end: 20240716
  8. DEXAMETHASONE [Concomitant]
     Active Substance: DEXAMETHASONE
     Dosage: 20 MG/DAY, QOW
     Route: 065
     Dates: start: 20241004, end: 20241129
  9. POLARAMINE [Concomitant]
     Active Substance: DEXCHLORPHENIRAMINE MALEATE
     Indication: Prophylaxis
     Dosage: 5 MG/DAY, QW
     Route: 065
     Dates: start: 20240328, end: 20240418
  10. POLARAMINE [Concomitant]
     Active Substance: DEXCHLORPHENIRAMINE MALEATE
     Dosage: 5 MG/DAY, QOW
     Route: 065
     Dates: start: 20240426, end: 20240510
  11. POLARAMINE [Concomitant]
     Active Substance: DEXCHLORPHENIRAMINE MALEATE
     Dosage: 5 MG/DAY, QOW
     Route: 065
     Dates: start: 20240618, end: 20240716
  12. POLARAMINE [Concomitant]
     Active Substance: DEXCHLORPHENIRAMINE MALEATE
     Dosage: 5 MG/DAY, QOW
     Route: 065
     Dates: start: 20241004, end: 20241129
  13. FAMOTIDINE [Concomitant]
     Active Substance: FAMOTIDINE
     Indication: Prophylaxis
     Dosage: 20 MG/DAY, QW
     Route: 065
     Dates: start: 20240328, end: 20240418
  14. FAMOTIDINE [Concomitant]
     Active Substance: FAMOTIDINE
     Dosage: 20 MG/DAY, QW
     Route: 065
     Dates: start: 20240426, end: 20240510
  15. FAMOTIDINE [Concomitant]
     Active Substance: FAMOTIDINE
     Dosage: 20 MG/DAY, QW
     Route: 065
     Dates: start: 20240618, end: 20240716
  16. FAMOTIDINE [Concomitant]
     Active Substance: FAMOTIDINE
     Dosage: 20 MG/DAY, QW
     Route: 065
     Dates: start: 20241004, end: 20241129
  17. ACETAMINOPHEN [Concomitant]
     Active Substance: ACETAMINOPHEN
     Indication: Prophylaxis
     Route: 065
     Dates: start: 20240404, end: 20240404
  18. CALONAL [Concomitant]
     Active Substance: ACETAMINOPHEN
     Indication: Prophylaxis
     Dosage: 500 MG/DAY, QOW
     Route: 065
     Dates: start: 20241004, end: 20241129

REACTIONS (5)
  - Pneumonia [Fatal]
  - Bacteraemia [Recovered/Resolved]
  - Bacteraemia [Recovered/Resolved]
  - Infusion related reaction [Recovered/Resolved]
  - Nausea [Unknown]

NARRATIVE: CASE EVENT DATE: 20240328
